FAERS Safety Report 6617006-4 (Version None)
Quarter: 2010Q1

REPORT INFORMATION
  Report Type: 
  Country: None (occurrence: None)
  Receive Date: 20100302
  Receipt Date: 20100215
  Transmission Date: 20100710
  Serious: Yes (Hospitalization)
  Sender: FDA-Public Use
  Company Number: 2010NI0044

PATIENT
  Age: 84 Year
  Sex: Female
  Weight: 65 kg

DRUGS (11)
  1. NITROLINGUAL PUMPSPRAY [Suspect]
     Indication: DYSPNOEA
     Dosage: 0.4 MG 1/1 DAY, AS NEEDED
     Dates: start: 20091104, end: 20091104
  2. ACETYLSALICYLIC ACID SRT [Concomitant]
  3. RAMIPRIL [Concomitant]
  4. AMLODIPINE [Concomitant]
  5. OL ( PANTOPRAZOLE SODIUM ) [Concomitant]
  6. MIRTAZAPINE [Concomitant]
  7. CANDESARTAN [Concomitant]
  8. NOVAMIN ( METAMIZOLE SODIUM ) [Concomitant]
  9. PALLADONE [Concomitant]
  10. BIFITERAL SIRUP ( LACTULOSE ) [Concomitant]
  11. INSULIN ACTRAPID HM PEN 120 (INSULIN HUMAN) [Concomitant]

REACTIONS (3)
  - DRUG HYPERSENSITIVITY [None]
  - STRIDOR [None]
  - SWOLLEN TONGUE [None]
